FAERS Safety Report 9602472 (Version 6)
Quarter: 2014Q1

REPORT INFORMATION
  Report Type: Report from Study
  Country: HU (occurrence: HU)
  Receive Date: 20131007
  Receipt Date: 20140129
  Transmission Date: 20141002
  Serious: Yes (Hospitalization)
  Sender: FDA-Public Use
  Company Number: HU-NOVOPROD-388375

PATIENT
  Age: 13 Year
  Sex: Female
  Weight: 75.8 kg

DRUGS (3)
  1. LIRAGLUTIDE FLEXPEN [Suspect]
     Indication: TYPE 2 DIABETES MELLITUS
     Dosage: 0.6 MG, QD
     Route: 058
     Dates: start: 20130528
  2. METFORMIN [Suspect]
     Indication: TYPE 2 DIABETES MELLITUS
  3. TRITACE [Concomitant]
     Indication: HYPERTENSION
     Dosage: 5.0 MG, QD
     Route: 048
     Dates: start: 20130427

REACTIONS (1)
  - Vertigo [Recovered/Resolved]
